FAERS Safety Report 9247889 (Version 1)
Quarter: 2013Q1

REPORT INFORMATION
  Report Type: Spontaneous
  Country: US (occurrence: None)
  Receive Date: 20130305
  Receipt Date: 20130305
  Transmission Date: 20140127
  Serious: Yes (Other)
  Sender: FDA-Public Use
  Company Number: 163-21880-12101423

PATIENT
  Age: 78 Year
  Sex: Male
  Weight: 66.68 kg

DRUGS (6)
  1. REVLIMID [Suspect]
     Indication: MYELODYSPLASTIC SYNDROME
     Dosage: 5MG, 28 IN 28 D, PO
     Route: 048
     Dates: start: 20120929
  2. MIDODRINE (MIDODRINE) (TABLETS) [Concomitant]
  3. FLUDROCORTISONE (FLUDROCORTISONE) [Concomitant]
  4. METOPROLOL (METOPROLOL) [Concomitant]
  5. PRISTIQ (DESVENLAFAXINSUCCINATE) [Concomitant]
  6. ACIPHEX (RABEPRAZOLE SODIUM) [Concomitant]

REACTIONS (2)
  - Asthenia [None]
  - Pruritus [None]
